FAERS Safety Report 6154733-X (Version None)
Quarter: 2009Q2

REPORT INFORMATION
  Report Type: 
  Country: None (occurrence: None)
  Receive Date: 20090414
  Receipt Date: 20090406
  Transmission Date: 20091009
  Serious: Yes (Other)
  Sender: FDA-Public Use
  Company Number: B0568634A

PATIENT
  Sex: Female
  Weight: 48 kg

DRUGS (7)
  1. ACYCLOVIR [Suspect]
     Route: 048
     Dates: start: 20090312, end: 20090319
  2. CALCIUM CARBONATE [Concomitant]
  3. DIGOXIN [Concomitant]
  4. LEVOTHYROXINE SODIUM [Concomitant]
  5. ASPIRIN [Concomitant]
  6. OXYBUTYNIN CHLORIDE [Concomitant]
  7. SENNA [Concomitant]

REACTIONS (3)
  - CONFUSIONAL STATE [None]
  - FALL [None]
  - HALLUCINATION, VISUAL [None]
